FAERS Safety Report 4421080-3 (Version None)
Quarter: 2004Q3

REPORT INFORMATION
  Report Type: 
  Country: None (occurrence: None)
  Receive Date: 20040803
  Receipt Date: 20040721
  Transmission Date: 20050211
  Serious: Yes (Other)
  Sender: FDA-Public Use
  Company Number: 2004050364

PATIENT
  Age: 61 Year
  Sex: Female

DRUGS (1)
  1. QUINAPRIL HCL [Suspect]
     Dosage: ORAL
     Route: 048
     Dates: start: 20010201, end: 20010301

REACTIONS (2)
  - DIABETES MELLITUS [None]
  - LIVER DISORDER [None]
